FAERS Safety Report 5988512-0 (Version None)
Quarter: 2008Q4

REPORT INFORMATION
  Report Type: 
  Country: None (occurrence: None)
  Receive Date: 20081204
  Receipt Date: 20081127
  Transmission Date: 20090506
  Serious: Yes (Death, Hospitalization, Other)
  Sender: FDA-Public Use
  Company Number: 2008-04502

PATIENT
  Age: 62 Year
  Sex: Male

DRUGS (6)
  1. VELCADE [Suspect]
     Indication: OESOPHAGEAL CARCINOMA RECURRENT
     Dosage: 0.175 MG, INTRA-ARTERIAL
     Route: 013
     Dates: start: 20071201
  2. TARCEVA [Concomitant]
  3. OXALIPLATIN [Concomitant]
  4. GEMCITABINE HCL [Concomitant]
  5. MITOMYCIN [Concomitant]
  6. AREDIA Z(PAMIDRONATE DISODIUM) [Concomitant]

REACTIONS (4)
  - DISEASE PROGRESSION [None]
  - INCORRECT ROUTE OF DRUG ADMINISTRATION [None]
  - INTERSTITIAL LUNG DISEASE [None]
  - OFF LABEL USE [None]
